FAERS Safety Report 8085620-8 (Version None)
Quarter: 2012Q1

REPORT INFORMATION
  Report Type: 
  Country: None (occurrence: None)
  Receive Date: 20120128
  Receipt Date: 20110401
  Transmission Date: 20120608
  Serious: No
  Sender: FDA-Public Use
  Company Number: US-ABBOTT-11P-163-0716234-00

PATIENT
  Sex: Female
  Weight: 81.72 kg

DRUGS (9)
  1. METHOTREXATE [Concomitant]
     Indication: RHEUMATOID ARTHRITIS
     Dosage: SIX TABS ON MONDAY.
  2. FOLIC ACID [Concomitant]
     Indication: RHEUMATOID ARTHRITIS
  3. OSCAL PLUS D [Concomitant]
     Indication: SUPPLEMENTATION THERAPY
  4. ZYRTEC [Concomitant]
     Indication: SEASONAL ALLERGY
     Dosage: OTC
  5. HUMIRA [Suspect]
     Indication: RHEUMATOID ARTHRITIS
     Dates: start: 20100901
  6. PRAVASTATIN [Concomitant]
     Indication: BLOOD CHOLESTEROL INCREASED
  7. NASONEX [Concomitant]
     Indication: SEASONAL ALLERGY
     Dosage: 2 SPRAYS EACH NOSTRIL.
     Route: 045
  8. OMEPRAZOLE [Concomitant]
     Indication: GASTRITIS
  9. ASCORBIC ACID [Concomitant]
     Indication: SUPPLEMENTATION THERAPY

REACTIONS (4)
  - UPPER RESPIRATORY TRACT INFECTION [None]
  - THROAT IRRITATION [None]
  - SINUS CONGESTION [None]
  - COUGH [None]
